FAERS Safety Report 18165167 (Version 1)
Quarter: 2020Q3

REPORT INFORMATION
  Report Type: Spontaneous
  Country: DE (occurrence: DE)
  Receive Date: 20200818
  Receipt Date: 20200818
  Transmission Date: 20201103
  Serious: Yes (Other)
  Sender: FDA-Public Use
  Company Number: DE-DSJP-DSE-2020-123090

PATIENT
  Age: 88 Year
  Sex: Female
  Weight: 55 kg

DRUGS (1)
  1. LIXIANA [Suspect]
     Active Substance: EDOXABAN TOSYLATE
     Indication: VENOUS THROMBOSIS LIMB
     Dosage: 60 MG, QD
     Dates: start: 2019

REACTIONS (2)
  - Basal cell carcinoma [Not Recovered/Not Resolved]
  - Incorrect dose administered [Not Recovered/Not Resolved]

NARRATIVE: CASE EVENT DATE: 2020
